FAERS Safety Report 9485622 (Version 2)
Quarter: 2013Q3

REPORT INFORMATION
  Report Type: Spontaneous
  Country: US (occurrence: US)
  Receive Date: 20130829
  Receipt Date: 20130829
  Transmission Date: 20140515
  Serious: No
  Sender: FDA-Public Use
  Company Number: US-009507513-1207USA005353

PATIENT
  Age: 27 Year
  Sex: Female
  Weight: 50.79 kg

DRUGS (1)
  1. IMPLANON [Suspect]
     Indication: CONTRACEPTION
     Dosage: UNK
     Route: 059
     Dates: start: 201010

REACTIONS (9)
  - Petechiae [Not Recovered/Not Resolved]
  - Vision blurred [Not Recovered/Not Resolved]
  - Palpitations [Not Recovered/Not Resolved]
  - Campbell de Morgan spots [Not Recovered/Not Resolved]
  - Implant site erythema [Not Recovered/Not Resolved]
  - Implant site swelling [Not Recovered/Not Resolved]
  - Headache [Not Recovered/Not Resolved]
  - Diarrhoea [Not Recovered/Not Resolved]
  - Arthralgia [Not Recovered/Not Resolved]
